FAERS Safety Report 7896064-3 (Version None)
Quarter: 2011Q4

REPORT INFORMATION
  Report Type: 
  Country: None (occurrence: None)
  Receive Date: 20111104
  Receipt Date: 20111104
  Transmission Date: 20120403
  Serious: No
  Sender: FDA-Public Use
  Company Number: None

PATIENT

DRUGS (1)
  1. CLOBETASOL PROPIONATE [Suspect]
     Indication: SKIN LESION
     Dosage: 45 GM
     Route: 047
     Dates: start: 20110204, end: 20110807

REACTIONS (2)
  - PRODUCT FORMULATION ISSUE [None]
  - BURNING SENSATION [None]
